FAERS Safety Report 5217128-9 (Version None)
Quarter: 2007Q1

REPORT INFORMATION
  Report Type: 
  Country: None (occurrence: None)
  Receive Date: 20070124
  Receipt Date: 20070119
  Transmission Date: 20070707
  Serious: Yes (Hospitalization)
  Sender: FDA-Public Use
  Company Number: JP-JPN-A200605471

PATIENT
  Age: 87 Year
  Sex: Female

DRUGS (4)
  1. VALTREX [Suspect]
     Indication: HERPES ZOSTER
     Dosage: 1000MG THREE TIMES PER DAY
     Route: 048
     Dates: start: 20061214, end: 20061217
  2. GASMOTIN [Concomitant]
     Dosage: 10MG PER DAY
     Route: 048
     Dates: end: 20061218
  3. ADALAT [Concomitant]
     Dosage: 40MG PER DAY
     Route: 048
     Dates: end: 20061218
  4. NITOROL R [Concomitant]
     Dosage: 40MG PER DAY
     Route: 048
     Dates: end: 20061218

REACTIONS (4)
  - DEHYDRATION [None]
  - DEPRESSED LEVEL OF CONSCIOUSNESS [None]
  - PYREXIA [None]
  - RENAL FAILURE ACUTE [None]
